FAERS Safety Report 17974179 (Version 3)
Quarter: 2020Q3

REPORT INFORMATION
  Report Type: Spontaneous
  Country: US (occurrence: US)
  Receive Date: 20200702
  Receipt Date: 20200915
  Transmission Date: 20201103
  Serious: Yes (Hospitalization)
  Sender: FDA-Public Use
  Company Number: US-AMNEAL PHARMACEUTICALS-2020-AMRX-01463

PATIENT
  Sex: Female
  Weight: 16 kg

DRUGS (8)
  1. APTIOM [Concomitant]
     Active Substance: ESLICARBAZEPINE ACETATE
     Indication: PRODUCT USED FOR UNKNOWN INDICATION
     Dosage: UNK
     Route: 065
  2. VIGABATRIN. [Suspect]
     Active Substance: VIGABATRIN
     Indication: EPILEPSY
     Dosage: 750 MILLIGRAM, BID IN THE AFTERNOON AND 750 MG AFTERNOON AND EVENING
     Route: 048
     Dates: start: 201806
  3. AFINITOR DISPERZ [Concomitant]
     Active Substance: EVEROLIMUS
     Indication: PRODUCT USED FOR UNKNOWN INDICATION
     Dosage: IN SUMMER FOR 2 MONTHS
     Route: 065
  4. DILANTIN [Concomitant]
     Active Substance: PHENYTOIN
     Indication: PRODUCT USED FOR UNKNOWN INDICATION
     Dosage: UNK
     Route: 065
  5. GABAPENTIN. [Concomitant]
     Active Substance: GABAPENTIN
     Indication: PRODUCT USED FOR UNKNOWN INDICATION
     Dosage: UNK
     Route: 048
  6. CARBAMAZEPINE. [Concomitant]
     Active Substance: CARBAMAZEPINE
     Indication: SEIZURE
     Dosage: UNK
     Route: 048
  7. VIGABATRIN. [Suspect]
     Active Substance: VIGABATRIN
     Indication: LENNOX-GASTAUT SYNDROME
     Dosage: 1000 MILLIGRAM, MORNING
     Route: 048
     Dates: start: 201806
  8. EPIDIOLEX [Suspect]
     Active Substance: CANNABIDIOL
     Indication: SEIZURE
     Dosage: UNK
     Route: 065

REACTIONS (2)
  - Decreased appetite [Not Recovered/Not Resolved]
  - Adverse event [Unknown]

NARRATIVE: CASE EVENT DATE: 2019
